FAERS Safety Report 9426651 (Version 1)
Quarter: 2013Q3

REPORT INFORMATION
  Report Type: Spontaneous
  Country: US (occurrence: US)
  Receive Date: 20130730
  Receipt Date: 20130730
  Transmission Date: 20140515
  Serious: No
  Sender: FDA-Public Use
  Company Number: US-SANOFI-AVENTIS-2013SA059604

PATIENT
  Sex: Female

DRUGS (3)
  1. AMBIEN [Suspect]
     Dosage: ON AND OFF
     Route: 048
  2. XANAX [Suspect]
  3. ALL OTHER THERAPEUTIC PRODUCTS [Suspect]

REACTIONS (2)
  - Therapeutic response decreased [Unknown]
  - Fatigue [Unknown]
